FAERS Safety Report 20165897 (Version 1)
Quarter: 2021Q4

REPORT INFORMATION
  Report Type: Spontaneous
  Country: US (occurrence: None)
  Receive Date: 20211208
  Receipt Date: 20211208
  Transmission Date: 20220304
  Serious: Yes (Life-Threatening)
  Sender: FDA-Public Use
  Company Number: None

PATIENT
  Age: 33 Year
  Weight: 125.55 kg

DRUGS (1)
  1. FERAHEME [Suspect]
     Active Substance: FERUMOXYTOL NON-STOICHIOMETRIC MAGNETITE
     Indication: Anaemia
     Dosage: OTHER FREQUENCY : ONE TIME INFUSION;?
     Route: 042
     Dates: start: 20211207, end: 20211207

REACTIONS (9)
  - Flushing [None]
  - Heart rate increased [None]
  - Hyperhidrosis [None]
  - Abdominal pain [None]
  - Back pain [None]
  - Back pain [None]
  - Headache [None]
  - Arthralgia [None]
  - Fatigue [None]

NARRATIVE: CASE EVENT DATE: 20211207
